FAERS Safety Report 17167622 (Version 3)
Quarter: 2020Q3

REPORT INFORMATION
  Report Type: Spontaneous
  Country: SI (occurrence: SI)
  Receive Date: 20191218
  Receipt Date: 20200702
  Transmission Date: 20201102
  Serious: Yes (Hospitalization, Other)
  Sender: FDA-Public Use
  Company Number: SI-ASTRAZENECA-2019SF81501

PATIENT
  Age: 58 Year
  Sex: Female
  Weight: 69 kg

DRUGS (10)
  1. FASENRA [Suspect]
     Active Substance: BENRALIZUMAB
     Indication: SECONDARY ADRENOCORTICAL INSUFFICIENCY
     Dosage: 30.0MG UNKNOWN
     Route: 058
  2. FASENRA [Suspect]
     Active Substance: BENRALIZUMAB
     Indication: CHRONIC RHINOSINUSITIS WITH NASAL POLYPS
     Dosage: 30.0MG UNKNOWN
     Route: 058
     Dates: start: 20190702, end: 20191218
  3. FASENRA [Suspect]
     Active Substance: BENRALIZUMAB
     Indication: ASTHMA
     Dosage: 30.0MG UNKNOWN
     Route: 058
  4. FASENRA [Suspect]
     Active Substance: BENRALIZUMAB
     Indication: SECONDARY ADRENOCORTICAL INSUFFICIENCY
     Dosage: 30.0MG UNKNOWN
     Route: 058
     Dates: start: 20190702, end: 20191218
  5. MEDROL [Concomitant]
     Active Substance: METHYLPREDNISOLONE
     Indication: EOSINOPHILIC GRANULOMATOSIS WITH POLYANGIITIS
     Route: 048
     Dates: start: 20191204
  6. ACTONEL [Concomitant]
     Active Substance: RISEDRONATE SODIUM
     Dosage: 75 MG BIMO
     Route: 065
  7. FASENRA [Suspect]
     Active Substance: BENRALIZUMAB
     Indication: ASTHMA
     Dosage: 30.0MG UNKNOWN
     Route: 058
     Dates: start: 20190702, end: 20191218
  8. FASENRA [Suspect]
     Active Substance: BENRALIZUMAB
     Indication: CHRONIC RHINOSINUSITIS WITH NASAL POLYPS
     Dosage: 30.0MG UNKNOWN
     Route: 058
  9. PLIVIT D3 [Concomitant]
     Active Substance: CHOLECALCIFEROL
     Route: 065
  10. NOLPAZA [Concomitant]
     Active Substance: PANTOPRAZOLE SODIUM
     Route: 065

REACTIONS (3)
  - Vasculitis [Recovered/Resolved]
  - Eosinophilic granulomatosis with polyangiitis [Recovering/Resolving]
  - Rash [Unknown]

NARRATIVE: CASE EVENT DATE: 20191204
